FAERS Safety Report 9038828 (Version 1)
Quarter: 2013Q1

REPORT INFORMATION
  Report Type: Spontaneous
  Country: US (occurrence: None)
  Receive Date: 20130123
  Receipt Date: 20130123
  Transmission Date: 20140127
  Serious: Yes (Hospitalization)
  Sender: FDA-Public Use
  Company Number: None

PATIENT
  Age: 81 None
  Sex: Female
  Weight: 68.49 kg

DRUGS (2)
  1. TOBRAMYCIN [Suspect]
     Indication: ASPERGILLUS INFECTION
     Dosage: 40 MG/ML 2/DAY W/NEBULIZER
     Dates: start: 20121109
  2. TOBRAMYCIN [Suspect]
     Indication: PSEUDOMONAS INFECTION
     Dosage: 40 MG/ML 2/DAY W/NEBULIZER
     Dates: start: 20121109

REACTIONS (1)
  - Dyspnoea [None]
